FAERS Safety Report 5994056-2 (Version None)
Quarter: 2008Q4

REPORT INFORMATION
  Report Type: 
  Country: None (occurrence: None)
  Receive Date: 20081212
  Receipt Date: 20080922
  Transmission Date: 20090506
  Serious: No
  Sender: FDA-Public Use
  Company Number: US-ABBOTT-08P-163-0473345-00

PATIENT
  Sex: Male
  Weight: 83.99 kg

DRUGS (11)
  1. HUMIRA [Suspect]
     Indication: CROHN'S DISEASE
     Route: 058
     Dates: start: 20080801, end: 20080801
  2. HUMIRA [Suspect]
     Indication: SACROILIITIS
     Route: 058
     Dates: start: 20080701, end: 20080701
  3. HUMIRA [Suspect]
     Route: 058
     Dates: start: 20080801
  4. HUMIRA [Suspect]
     Route: 058
  5. MESALAMINE [Concomitant]
     Indication: CROHN'S DISEASE
     Route: 048
  6. LANSOPRAZOLE [Concomitant]
     Indication: GASTROOESOPHAGEAL REFLUX DISEASE
     Route: 048
     Dates: start: 20080922
  7. TELMISARTAN [Concomitant]
     Indication: HYPERTENSION
     Route: 048
  8. TADALAFIL [Concomitant]
     Indication: ERECTILE DYSFUNCTION
     Route: 048
  9. SKELETIN [Concomitant]
     Indication: MYALGIA
     Route: 048
  10. INFLUENZA VIRUS VACCINE POLYVALENT [Concomitant]
     Indication: DRUG USE FOR UNKNOWN INDICATION
     Route: 050
     Dates: start: 20080701, end: 20080701
  11. PNEUMONIA VACCINE [Concomitant]
     Indication: DRUG USE FOR UNKNOWN INDICATION
     Dates: start: 20080701, end: 20080701

REACTIONS (2)
  - ASTHENIA [None]
  - RASH [None]
